FAERS Safety Report 17471560 (Version 1)
Quarter: 2020Q1

REPORT INFORMATION
  Report Type: Spontaneous
  Country: FR (occurrence: FR)
  Receive Date: 20200228
  Receipt Date: 20200228
  Transmission Date: 20200409
  Serious: Yes (Life-Threatening)
  Sender: FDA-Public Use
  Company Number: FR-TEVA-2020-FR-1192172

PATIENT
  Age: 56 Year
  Sex: Female

DRUGS (5)
  1. LIPTRUZET [Suspect]
     Active Substance: ATORVASTATIN CALCIUM\EZETIMIBE
     Indication: HYPERCHOLESTEROLAEMIA
     Dosage: 1 DOSAGE FORM
     Route: 048
     Dates: start: 201812
  2. DUOPLAVIN 75 MG/75 MG, COMPRIME PELLICULE [Suspect]
     Active Substance: ASPIRIN\CLOPIDOGREL
     Indication: THROMBOSIS PROPHYLAXIS
     Dosage: 1 DOSAGE FORM
     Route: 048
     Dates: start: 201812, end: 20200120
  3. LEVOTHYROX [Concomitant]
     Active Substance: LEVOTHYROXINE
     Indication: HYPOTHYROIDISM
     Dosage: 87.7MCG
     Route: 048
  4. CARVEDILOL. [Suspect]
     Active Substance: CARVEDILOL
     Indication: ACUTE CORONARY SYNDROME
     Dosage: 12.5MG
     Route: 048
     Dates: start: 201812, end: 20200120
  5. RAMIPRIL. [Suspect]
     Active Substance: RAMIPRIL
     Indication: ACUTE CORONARY SYNDROME
     Dosage: 2.5MG
     Route: 048
     Dates: start: 201812, end: 20200120

REACTIONS (2)
  - Cardio-respiratory arrest [Recovered/Resolved]
  - Arterial stenosis [Recovering/Resolving]

NARRATIVE: CASE EVENT DATE: 20200127
